FAERS Safety Report 10633755 (Version 2)
Quarter: 2014Q4

REPORT INFORMATION
  Report Type: Report from Study
  Country: FR (occurrence: FR)
  Receive Date: 20141205
  Receipt Date: 20141205
  Transmission Date: 20150529
  Serious: Yes (Hospitalization)
  Sender: FDA-Public Use
  Company Number: FR-MERCK-1311FRA012674

PATIENT
  Age: 58 Year
  Sex: Male
  Weight: 88 kg

DRUGS (7)
  1. PEMBROLIZUMAB. [Suspect]
     Active Substance: PEMBROLIZUMAB
     Dosage: 10 MG/KG, Q3W, DOSE ALSO REPORTED AS 200, UNITS NOT PROVIDED
     Route: 042
     Dates: start: 20131113, end: 20131113
  2. METFORMIN [Concomitant]
     Active Substance: METFORMIN HYDROCHLORIDE
     Indication: DIABETES MELLITUS
     Dosage: 700 MG, BID
     Route: 048
     Dates: start: 200808
  3. PREGABALIN. [Concomitant]
     Active Substance: PREGABALIN
     Indication: AXILLARY PAIN
     Dosage: 200 MG, BID
     Route: 048
     Dates: start: 20130913
  4. PEMBROLIZUMAB. [Suspect]
     Active Substance: PEMBROLIZUMAB
     Indication: MALIGNANT MELANOMA
     Dosage: 10 MG/KG, Q3W, DOSE ALSO REPORTED AS 200, UNITS NOT PROVIDED
     Route: 042
     Dates: start: 20131024, end: 20131024
  5. NEBIVOLOL [Concomitant]
     Active Substance: NEBIVOLOL
     Indication: HYPERTENSION
     Dosage: 2.5 MG, QD
     Route: 048
     Dates: start: 200309
  6. TRAMADOL HYDROCHLORIDE. [Concomitant]
     Active Substance: TRAMADOL HYDROCHLORIDE
     Indication: AXILLARY PAIN
     Dosage: 150 MG, QID
     Route: 048
     Dates: start: 20130913
  7. ACETAMINOPHEN. [Concomitant]
     Active Substance: ACETAMINOPHEN
     Indication: AXILLARY PAIN
     Dosage: 3 G DAILY, PRN
     Route: 048
     Dates: start: 201305

REACTIONS (2)
  - Cough [Recovered/Resolved]
  - Thrombocytopenia [Not Recovered/Not Resolved]

NARRATIVE: CASE EVENT DATE: 20131029
